FAERS Safety Report 4432217-4 (Version None)
Quarter: 2004Q3

REPORT INFORMATION
  Report Type: 
  Country: None (occurrence: None)
  Receive Date: 20040820
  Receipt Date: 20040810
  Transmission Date: 20050211
  Serious: Yes (Death)
  Sender: FDA-Public Use
  Company Number: 2004047916

PATIENT
  Age: 90 Year
  Sex: Male

DRUGS (1)
  1. CARDURA [Suspect]
     Indication: BENIGN PROSTATIC HYPERPLASIA
     Dosage: 4 MG (4 MG, 1 IN 1 D), ORAL
     Route: 048
     Dates: start: 19980618, end: 20040711

REACTIONS (1)
  - BRAIN NEOPLASM MALIGNANT [None]
